FAERS Safety Report 19882069 (Version 4)
Quarter: 2021Q4

REPORT INFORMATION
  Report Type: Spontaneous
  Country: FR (occurrence: FR)
  Receive Date: 20210924
  Receipt Date: 20211122
  Transmission Date: 20220303
  Serious: Yes (Hospitalization)
  Sender: FDA-Public Use
  Company Number: FR-CODEXIAL-202100004

PATIENT
  Age: 69 Year
  Sex: Male
  Weight: 57 kg

DRUGS (14)
  1. IVERMECTIN [Suspect]
     Active Substance: IVERMECTIN
     Indication: Acarodermatitis
     Dosage: 200 MICROGRAM PER KILOGRAM,3 TOTAL,APPLIED 3 TIMES : ON 10-AUG, 17-AUG AND 24-AUG-2021
     Route: 048
     Dates: start: 20210810, end: 20210824
  2. PERMETHRIN [Suspect]
     Active Substance: PERMETHRIN
     Indication: Acarodermatitis
     Dosage: 1 DOSAGE FORM, 2 TOTAL, APPLIED 2 TIMES : ON 10-AUG AND ON 17-AUG-2021
     Route: 061
     Dates: start: 20210810, end: 20210817
  3. ALMOND OIL\WHITE WAX [Suspect]
     Active Substance: ALMOND OIL\WHITE WAX
     Indication: Acarodermatitis
     Dosage: 1 DOSAGE FORM
     Route: 061
     Dates: start: 20210810
  4. METHOTREXATE [Concomitant]
     Active Substance: METHOTREXATE
     Indication: Eosinophilia
     Dosage: UNK
     Route: 058
     Dates: start: 20210818
  5. METHOTREXATE [Concomitant]
     Active Substance: METHOTREXATE
     Indication: Eczema
  6. PERINDOPRIL [Concomitant]
     Active Substance: PERINDOPRIL
     Indication: Hypertension
     Dosage: 4 MILLIGRAM, QD
     Route: 048
  7. BETAMETHASONE VALERATE [Concomitant]
     Active Substance: BETAMETHASONE VALERATE
     Indication: Eczema
     Dosage: UNK
     Route: 061
     Dates: start: 20210819
  8. BETAMETHASONE VALERATE [Concomitant]
     Active Substance: BETAMETHASONE VALERATE
     Indication: Eosinophilia
  9. FOLIC ACID [Concomitant]
     Active Substance: FOLIC ACID
     Indication: Vitamin supplementation
     Dosage: UNK
     Route: 048
  10. NERISONE [Concomitant]
     Active Substance: DIFLUCORTOLONE VALERATE
     Indication: Eczema
     Dosage: 30 GRAM, QD
     Route: 061
     Dates: start: 20210813, end: 20210818
  11. NERISONE [Concomitant]
     Active Substance: DIFLUCORTOLONE VALERATE
     Indication: Eosinophilia
  12. ATARAX [Concomitant]
     Active Substance: HYDROXYZINE HYDROCHLORIDE
     Indication: Pruritus
     Dosage: 50 MILLIGRAM
     Route: 048
     Dates: start: 20210813, end: 20210815
  13. ATARAX [Concomitant]
     Active Substance: HYDROXYZINE HYDROCHLORIDE
     Dosage: 100 MILLIGRAM, QD
     Route: 048
     Dates: start: 20210817
  14. ATARAX [Concomitant]
     Active Substance: HYDROXYZINE HYDROCHLORIDE
     Dosage: 75 MILLIGRAM, QD
     Route: 048
     Dates: start: 20210816, end: 20210816

REACTIONS (2)
  - Eczema [Recovered/Resolved with Sequelae]
  - Eosinophilia [Recovered/Resolved with Sequelae]

NARRATIVE: CASE EVENT DATE: 20210812
